FAERS Safety Report 24293124 (Version 1)
Quarter: 2024Q3

REPORT INFORMATION
  Report Type: Spontaneous
  Country: US (occurrence: None)
  Receive Date: 20240906
  Receipt Date: 20240906
  Transmission Date: 20241017
  Serious: No
  Sender: DOMPE FARMACEUTICI
  Company Number: US-FARMAPROD-202308-202311-3504

PATIENT
  Age: 74 Year
  Sex: Male
  Weight: 79.83 kg

DRUGS (16)
  1. OXERVATE [Suspect]
     Active Substance: CENEGERMIN-BKBJ
     Indication: Neurotrophic keratopathy
     Route: 047
     Dates: start: 20231122
  2. TADALAFIL [Concomitant]
     Active Substance: TADALAFIL
  3. LASIX [Concomitant]
     Active Substance: FUROSEMIDE
  4. RANEXA [Concomitant]
     Active Substance: RANOLAZINE
     Dosage: FOR 12 HOURS.
  5. CLOPIDOGREL [Concomitant]
     Active Substance: CLOPIDOGREL BISULFATE
  6. FISH OIL-VIT D3 [Concomitant]
     Dosage: 300-1000 MG
  7. MONTELUKAST SODIUM [Concomitant]
     Active Substance: MONTELUKAST\MONTELUKAST SODIUM
  8. MESALAMINE [Concomitant]
     Active Substance: MESALAMINE
  9. TESTOSTERONE [Concomitant]
     Active Substance: TESTOSTERONE
     Dosage: 2.5 GRAM -1.62 % GEL PACKET.
  10. ALLOPURINOL [Concomitant]
     Active Substance: ALLOPURINOL
  11. LIPITOR [Concomitant]
     Active Substance: ATORVASTATIN CALCIUM
  12. FAMOTIDINE [Concomitant]
     Active Substance: FAMOTIDINE
  13. ASPIRIN [Concomitant]
     Active Substance: ASPIRIN
  14. AMLODIPINE BESYLATE [Concomitant]
     Active Substance: AMLODIPINE BESYLATE
  15. HALOPERIDOL [Concomitant]
     Active Substance: HALOPERIDOL
  16. ATORVASTATIN [Concomitant]
     Active Substance: ATORVASTATIN

REACTIONS (3)
  - Eye pain [Not Recovered/Not Resolved]
  - Eye pruritus [Unknown]
  - Photophobia [Unknown]

NARRATIVE: CASE EVENT DATE: 20231124
